FAERS Safety Report 10183626 (Version 1)
Quarter: 2014Q2

REPORT INFORMATION
  Report Type: Spontaneous
  Country: US (occurrence: US)
  Receive Date: 20140520
  Receipt Date: 20140520
  Transmission Date: 20141212
  Serious: Yes (Other)
  Sender: FDA-Public Use
  Company Number: US-GLAXOSMITHKLINE-A1073795A

PATIENT
  Age: 67 Year
  Sex: Male

DRUGS (1)
  1. ARZERRA [Suspect]
     Indication: LYMPHOMA
     Route: 065
     Dates: start: 20140128

REACTIONS (4)
  - Lymphoma [Not Recovered/Not Resolved]
  - Asthenia [Not Recovered/Not Resolved]
  - Fatigue [Not Recovered/Not Resolved]
  - Malaise [Unknown]
